FAERS Safety Report 13167107 (Version 2)
Quarter: 2017Q1

REPORT INFORMATION
  Report Type: Spontaneous
  Country: GR (occurrence: GR)
  Receive Date: 20170131
  Receipt Date: 20170216
  Transmission Date: 20170428
  Serious: Yes (Other)
  Sender: FDA-Public Use
  Company Number: GR-AMGEN-GRCSP2017013229

PATIENT
  Age: 60 Year
  Sex: Female

DRUGS (3)
  1. APROVEL [Concomitant]
     Active Substance: IRBESARTAN
     Dosage: 150 MG, UNK
  2. PROLIA [Suspect]
     Active Substance: DENOSUMAB
     Indication: OSTEOPOROSIS
     Dosage: 60 MG, Q6MO
     Route: 065
     Dates: start: 2015
  3. ZANIDIP [Concomitant]
     Active Substance: LERCANIDIPINE HYDROCHLORIDE
     Dosage: 10 MG, UNK

REACTIONS (4)
  - Hepatic enzyme increased [Unknown]
  - Surgery [Unknown]
  - Hepatomegaly [Unknown]
  - Endometrial hyperplasia [Unknown]

NARRATIVE: CASE EVENT DATE: 2016
